FAERS Safety Report 9763664 (Version 2)
Quarter: 2014Q1

REPORT INFORMATION
  Report Type: Spontaneous
  Country: US (occurrence: US)
  Receive Date: 20131216
  Receipt Date: 20140124
  Transmission Date: 20141002
  Serious: No
  Sender: FDA-Public Use
  Company Number: US-BIOGENIDEC-2013BI116717

PATIENT
  Age: 66 Year
  Sex: Male

DRUGS (4)
  1. TECFIDERA [Suspect]
     Indication: RELAPSING-REMITTING MULTIPLE SCLEROSIS
  2. TECFIDERA [Suspect]
     Indication: RELAPSING-REMITTING MULTIPLE SCLEROSIS
     Route: 048
  3. TYSABRI [Concomitant]
     Indication: MULTIPLE SCLEROSIS
     Route: 042
     Dates: start: 20070419, end: 20071016
  4. AVONEX [Concomitant]
     Indication: MULTIPLE SCLEROSIS
     Route: 030
     Dates: start: 19991101, end: 20011101

REACTIONS (13)
  - Fall [Recovered/Resolved]
  - Confusional state [Unknown]
  - Decreased appetite [Unknown]
  - Abnormal behaviour [Unknown]
  - Asthenia [Unknown]
  - Skin discolouration [Unknown]
  - Tremor [Unknown]
  - Fluid retention [Unknown]
  - Gastric disorder [Unknown]
  - Diarrhoea [Unknown]
  - Somnolence [Unknown]
  - Flushing [Recovered/Resolved]
  - Disorientation [Unknown]
